APPROVED DRUG PRODUCT: NAPROXEN SODIUM
Active Ingredient: NAPROXEN SODIUM
Strength: 220MG
Dosage Form/Route: TABLET;ORAL
Application: A205497 | Product #001
Applicant: AUROBINDO PHARMA LTD
Approved: Mar 18, 2016 | RLD: No | RS: No | Type: OTC